FAERS Safety Report 5340397-1 (Version None)
Quarter: 2007Q2

REPORT INFORMATION
  Report Type: 
  Country: None (occurrence: None)
  Receive Date: 20070531
  Receipt Date: 20070522
  Transmission Date: 20071010
  Serious: Yes (Life-Threatening)
  Sender: FDA-Public Use
  Company Number: JP-ROCHE-488127

PATIENT
  Age: 58 Year
  Sex: Male

DRUGS (8)
  1. TAMIFLU [Suspect]
     Route: 048
     Dates: start: 20070312, end: 20070313
  2. MYSLEE [Suspect]
     Indication: INSOMNIA
     Route: 048
  3. POTACOL-R [Concomitant]
     Route: 041
     Dates: start: 20070312, end: 20070312
  4. CALONAL [Concomitant]
     Dosage: DOSE: 6 TABLETS/DAY.
     Route: 048
     Dates: start: 20070312
  5. 1 CONCOMITANT DRUG [Concomitant]
     Dosage: ANTIDIABETIC AGENT.
     Route: 048
  6. LOXONIN [Concomitant]
     Route: 048
     Dates: start: 20070309
  7. SELBEX [Concomitant]
     Route: 048
     Dates: start: 20070309
  8. 1 CONCOMITANT DRUG [Concomitant]
     Dosage: GENERIC: LIGHTEN T.
     Route: 048
     Dates: start: 20070309

REACTIONS (2)
  - ALTERED STATE OF CONSCIOUSNESS [None]
  - DELIRIUM [None]
